FAERS Safety Report 5326499-4 (Version None)
Quarter: 2007Q2

REPORT INFORMATION
  Report Type: 
  Country: None (occurrence: None)
  Receive Date: 20070516
  Receipt Date: 20070511
  Transmission Date: 20071010
  Serious: Yes (Other)
  Sender: FDA-Public Use
  Company Number: US-ASTRAZENECA-2007UW02896

PATIENT
  Age: 74 Year
  Sex: Female
  Weight: 60.8 kg

DRUGS (4)
  1. ATACAND [Suspect]
     Indication: HYPERTENSION
     Route: 048
     Dates: start: 20070131
  2. METFORMIN HCL [Concomitant]
  3. AVANDIA [Concomitant]
  4. LIPITOR [Concomitant]

REACTIONS (3)
  - DIZZINESS [None]
  - EYE HAEMORRHAGE [None]
  - VISUAL DISTURBANCE [None]
